FAERS Safety Report 23046351 (Version 1)
Quarter: 2023Q4

REPORT INFORMATION
  Report Type: Report from Study
  Country: BR (occurrence: BR)
  Receive Date: 20231009
  Receipt Date: 20231009
  Transmission Date: 20240109
  Serious: Yes (Life-Threatening, Hospitalization, Other)
  Sender: FDA-Public Use
  Company Number: BR-002147023-NVSC2023BR216845

PATIENT
  Age: 72 Year
  Sex: Female

DRUGS (1)
  1. ENTRESTO [Suspect]
     Active Substance: SACUBITRIL\VALSARTAN
     Indication: Cardiac failure
     Dosage: UNK
     Route: 065

REACTIONS (12)
  - Cardiac arrest [Not Recovered/Not Resolved]
  - Cerebrovascular accident [Unknown]
  - Pulmonary oedema [Unknown]
  - Wheezing [Unknown]
  - Cardiovascular disorder [Unknown]
  - Dengue fever [Unknown]
  - Depression [Unknown]
  - Poor quality sleep [Unknown]
  - Illness [Unknown]
  - Head discomfort [Unknown]
  - Vomiting [Unknown]
  - Fatigue [Unknown]

NARRATIVE: CASE EVENT DATE: 20231005
